FAERS Safety Report 7047059-3 (Version None)
Quarter: 2010Q4

REPORT INFORMATION
  Report Type: 
  Country: None (occurrence: None)
  Receive Date: 20101015
  Receipt Date: 20101005
  Transmission Date: 20110411
  Serious: Yes (Other)
  Sender: FDA-Public Use
  Company Number: US-WYE-H18013610

PATIENT
  Sex: Female
  Weight: 94.89 kg

DRUGS (5)
  1. PRISTIQ [Suspect]
     Indication: DEPRESSION
     Dates: start: 20100501, end: 20100901
  2. COZAAR [Concomitant]
     Indication: HYPERTENSION
     Dosage: UNKNOWN
     Dates: start: 20100501
  3. DEPAKOTE [Suspect]
     Indication: CONVULSION
     Dates: start: 20100829, end: 20101001
  4. DEPAKOTE [Suspect]
     Dosage: UNKNONWN
     Dates: start: 20101004
  5. LEXAPRO [Concomitant]
     Indication: DEPRESSION
     Dosage: UNKNOWN
     Dates: end: 20100501

REACTIONS (5)
  - CONVULSION [None]
  - HYPOAESTHESIA [None]
  - HYPOAESTHESIA FACIAL [None]
  - HYPOAESTHESIA ORAL [None]
  - SWOLLEN TONGUE [None]
